FAERS Safety Report 6679495-9 (Version None)
Quarter: 2010Q2

REPORT INFORMATION
  Report Type: 
  Country: None (occurrence: None)
  Receive Date: 20100413
  Receipt Date: 20100331
  Transmission Date: 20101027
  Serious: Yes (Hospitalization, Other)
  Sender: FDA-Public Use
  Company Number: PHEH2009US01410

PATIENT
  Sex: Female
  Weight: 92.063 kg

DRUGS (45)
  1. ZOMETA [Suspect]
     Indication: MULTIPLE MYELOMA
     Dosage: UNK
     Route: 042
     Dates: start: 20030101, end: 20040101
  2. GLIPIZIDE [Concomitant]
     Dosage: 5MG TWICE DAILY
  3. ATACAND HCT [Concomitant]
     Dosage: 30 MG / Q.D.
     Route: 048
  4. FAMOTIDINE [Concomitant]
     Dosage: 20MG TWICE DAILY
  5. DECADRON [Concomitant]
  6. CHLORHEXIDINE GLUCONATE [Concomitant]
     Dosage: 15 ML, TWICE DAILY
  7. ERTAPENEM [Concomitant]
     Dosage: 1000 MG / EVERY 24 HRS
  8. OXYCODONE [Concomitant]
     Dosage: 5-325 MG / ONE TABLET EVERY 4 HRS AS NEEDED
  9. SITAGLIPTIN [Concomitant]
     Dosage: 100 MG / ONE TABLET DAILY
  10. THALIDOMIDE [Concomitant]
     Dosage: 200 MG / 1 CAPSULE AT BEDTIME
     Route: 048
  11. VALSARTAN/HYDROCHLOORTHIAZIDE [Concomitant]
     Dosage: 12.5 MG / 1 TABLET DAILY
     Route: 048
  12. AUGMENTIN '125' [Concomitant]
     Dosage: UNK
     Dates: end: 20080701
  13. DIOVAN [Concomitant]
     Dosage: UNK
  14. LEVEMIR [Concomitant]
     Dosage: UNK
  15. DARVOCET-N 100 [Concomitant]
     Dosage: UNK
  16. ANTIBIOTICS [Concomitant]
     Dosage: UNK
  17. ANALGESICS [Concomitant]
     Dosage: UNK
  18. ALTEPLASE [Concomitant]
     Dosage: 2 MG
  19. DEXTROSE [Concomitant]
     Dosage: 12.5 G, P.R.N.
  20. ENOXAPARIN SODIUM [Concomitant]
     Dosage: 40 MG / Q24HR
  21. MORPHINE [Concomitant]
     Dosage: 2.0 MG/ Q2H
     Dates: start: 20080707
  22. PERCOCET [Concomitant]
     Dosage: 1.00 / Q4H
     Dates: start: 20080707
  23. ONDANSETRON [Concomitant]
     Dosage: 4.0 MG / Q8H
     Dates: start: 20080707, end: 20080709
  24. HYDROCORTISONE CREAM (B.P.C.,B.N.F.) [Concomitant]
     Dosage: UNK
     Route: 061
     Dates: start: 20090707
  25. ACETAMINOPHEN [Concomitant]
     Dosage: 650 MG / Q6H
     Dates: start: 20080707
  26. LORAZEPAM [Concomitant]
     Dosage: 1.0 MG / Q6H
     Dates: start: 20080707
  27. UNASYN [Concomitant]
     Dosage: 3.0 G / Q6H
     Dates: start: 20080707, end: 20090709
  28. LACTATED RINGER'S [Concomitant]
     Dosage: 1000 ML
     Route: 042
     Dates: start: 20080707, end: 20080707
  29. FENTANYL-100 [Concomitant]
     Dosage: 50 MCG / Q5MIN
     Dates: start: 20080707, end: 20080707
  30. GLUCAGON [Concomitant]
     Dosage: 1.00 MG / PRN
     Dates: start: 20080707
  31. INSULIN HUMAN [Concomitant]
     Dosage: 2.00 UNIT
     Dates: start: 20080707, end: 20080707
  32. GLYBURIDE [Concomitant]
     Dosage: 5 MG / Q.D.
     Route: 048
  33. PEPCID [Concomitant]
     Dosage: 20 MG / B.I.D.
     Route: 048
  34. IRON SUPPLEMENTS [Concomitant]
     Dosage: UNK
  35. DEXAMETHASONE [Concomitant]
     Dosage: UNK
  36. DEFAVELL [Concomitant]
  37. FLUTAMIDE [Concomitant]
  38. TRAMADOL HCL [Concomitant]
  39. TIMENTIN [Concomitant]
  40. PROCRIT                            /00909301/ [Concomitant]
  41. METFORMIN HCL [Concomitant]
  42. PREVACID [Concomitant]
  43. ASPIRIN [Concomitant]
  44. ZOSYN [Concomitant]
  45. VASOTEC [Concomitant]

REACTIONS (39)
  - ABSCESS [None]
  - ANAEMIA [None]
  - ASTHENIA [None]
  - BONE DISORDER [None]
  - BONE OPERATION [None]
  - BREAST CANCER METASTATIC [None]
  - CAROTID BRUIT [None]
  - CELLULITIS [None]
  - CENTRAL VENOUS CATHETERISATION [None]
  - DEBRIDEMENT [None]
  - DEEP VEIN THROMBOSIS [None]
  - FATIGUE [None]
  - FISTULA [None]
  - GINGIVAL EROSION [None]
  - HYPOAESTHESIA [None]
  - HYPOPHAGIA [None]
  - JAW DISORDER [None]
  - LOCAL SWELLING [None]
  - LUDWIG ANGINA [None]
  - METASTASES TO LIVER [None]
  - NECK PAIN [None]
  - NEUROPATHY PERIPHERAL [None]
  - OBESITY [None]
  - OSTEOMYELITIS [None]
  - OSTEONECROSIS [None]
  - PAIN IN JAW [None]
  - PARAESTHESIA [None]
  - PAROTID GLAND ENLARGEMENT [None]
  - PRURITUS GENERALISED [None]
  - RASH MACULAR [None]
  - SEQUESTRECTOMY [None]
  - SPINAL COLUMN STENOSIS [None]
  - SQUAMOUS CELL CARCINOMA [None]
  - SWELLING FACE [None]
  - TOOTH EXTRACTION [None]
  - TOOTH LOSS [None]
  - TRANSFUSION [None]
  - TRICUSPID VALVE INCOMPETENCE [None]
  - WEIGHT DECREASED [None]
